FAERS Safety Report 11611004 (Version 1)
Quarter: 2015Q4

REPORT INFORMATION
  Report Type: Spontaneous
  Country: US (occurrence: US)
  Receive Date: 20151008
  Receipt Date: 20151008
  Transmission Date: 20160304
  Serious: No
  Sender: FDA-Public Use
  Company Number: US-PFIZER INC-2015331135

PATIENT
  Sex: Male

DRUGS (4)
  1. CELEBREX [Suspect]
     Active Substance: CELECOXIB
     Dosage: UNK
  2. ATIVAN [Suspect]
     Active Substance: LORAZEPAM
     Dosage: UNK
  3. NORVASC [Suspect]
     Active Substance: AMLODIPINE BESYLATE
     Dosage: UNK
  4. VALIUM [Suspect]
     Active Substance: DIAZEPAM
     Dosage: UNK

REACTIONS (1)
  - Drug hypersensitivity [Unknown]
